FAERS Safety Report 11422964 (Version 1)
Quarter: 2015Q3

REPORT INFORMATION
  Report Type: Spontaneous
  Country: US (occurrence: None)
  Receive Date: 20150826
  Receipt Date: 20150826
  Transmission Date: 20151125
  Serious: Yes (Other)
  Sender: FDA-Public Use
  Company Number: None

PATIENT
  Age: 33 Year
  Sex: Female
  Weight: 63.5 kg

DRUGS (1)
  1. LAMOTRIGINE 25MG [Suspect]
     Active Substance: LAMOTRIGINE
     Indication: BIPOLAR DISORDER
     Dosage: 1 - 1/2 PILLS
     Route: 048
     Dates: start: 20150722, end: 20150823

REACTIONS (3)
  - Product substitution issue [None]
  - Treatment failure [None]
  - Headache [None]

NARRATIVE: CASE EVENT DATE: 20150824
